FAERS Safety Report 17111811 (Version 1)
Quarter: 2019Q4

REPORT INFORMATION
  Report Type: Spontaneous
  Country: US (occurrence: US)
  Receive Date: 20191204
  Receipt Date: 20191204
  Transmission Date: 20200122
  Serious: No
  Sender: FDA-Public Use
  Company Number: US-SUNOVION-2019SUN005222

PATIENT
  Age: 58 Year
  Sex: Female

DRUGS (1)
  1. LONHALA MAGNAIR [Suspect]
     Active Substance: GLYCOPYRROLATE
     Dosage: 25 ?G, BID (SOMETIMES ONCE PER DAY)
     Route: 055

REACTIONS (3)
  - Depression [Unknown]
  - Off label use [Unknown]
  - Dyspnoea [Unknown]
